FAERS Safety Report 5431575-1 (Version None)
Quarter: 2007Q3

REPORT INFORMATION
  Report Type: 
  Country: None (occurrence: None)
  Receive Date: 20070830
  Receipt Date: 20070820
  Transmission Date: 20080115
  Serious: Yes (Other)
  Sender: FDA-Public Use
  Company Number: US-JNJFOC-20070605854

PATIENT
  Sex: Female
  Weight: 65.77 kg

DRUGS (10)
  1. TOPAMAX [Suspect]
     Route: 048
  2. TOPAMAX [Suspect]
     Route: 048
  3. TOPAMAX [Suspect]
     Dosage: 75 MG IN THE MORNING   50 MG IN THE EVENING
     Route: 048
  4. TOPAMAX [Suspect]
     Route: 048
  5. TOPAMAX [Suspect]
     Route: 048
  6. TOPAMAX [Suspect]
     Indication: MIGRAINE PROPHYLAXIS
     Route: 048
  7. NASACORT AQ [Concomitant]
     Route: 045
  8. EFFEXOR XR [Concomitant]
     Route: 048
  9. FIORICET [Concomitant]
     Route: 048
  10. CEFZIL [Concomitant]
     Route: 048

REACTIONS (4)
  - HYPOAESTHESIA [None]
  - INTERVERTEBRAL DISC PROTRUSION [None]
  - MUSCULOSKELETAL PAIN [None]
  - THIRST [None]
